FAERS Safety Report 10069438 (Version 1)
Quarter: 2014Q2

REPORT INFORMATION
  Report Type: Spontaneous
  Country: GR (occurrence: GR)
  Receive Date: 20140410
  Receipt Date: 20140410
  Transmission Date: 20141212
  Serious: Yes (Other)
  Sender: FDA-Public Use
  Company Number: GR-ROCHE-1375667

PATIENT
  Age: 37 Year
  Sex: Male

DRUGS (3)
  1. TAMIFLU [Suspect]
     Indication: H1N1 INFLUENZA
     Route: 048
  2. ZITHROMAX [Concomitant]
     Indication: H1N1 INFLUENZA
  3. PONSTAN [Concomitant]

REACTIONS (1)
  - Hyperhidrosis [Recovered/Resolved]
